FAERS Safety Report 21853199 (Version 1)
Quarter: 2023Q1

REPORT INFORMATION
  Report Type: Report from Study
  Country: US (occurrence: US)
  Receive Date: 20230112
  Receipt Date: 20230112
  Transmission Date: 20230417
  Serious: Yes (Other)
  Sender: FDA-Public Use
  Company Number: US-ABBVIE-4265967

PATIENT
  Age: 66 Year
  Sex: Female

DRUGS (1)
  1. HUMIRA [Suspect]
     Active Substance: ADALIMUMAB
     Indication: Rheumatoid arthritis
     Route: 058
     Dates: start: 20220301

REACTIONS (5)
  - Knee arthroplasty [Unknown]
  - Rhinorrhoea [Unknown]
  - Asthenia [Unknown]
  - Pain [Unknown]
  - Eye disorder [Unknown]

NARRATIVE: CASE EVENT DATE: 20220912
